FAERS Safety Report 22392527 (Version 1)
Quarter: 2023Q2

REPORT INFORMATION
  Report Type: Spontaneous
  Country: US (occurrence: US)
  Receive Date: 20230601
  Receipt Date: 20230601
  Transmission Date: 20230722
  Serious: Yes (Other)
  Sender: FDA-Public Use
  Company Number: US-APOTEX-2023AP008487

PATIENT
  Age: 34 Year
  Sex: Female

DRUGS (1)
  1. ERLOTINIB [Suspect]
     Active Substance: ERLOTINIB
     Indication: Lung adenocarcinoma stage III
     Dosage: UNK, THERAPY DURATION 73.8 MONTHS
     Route: 065

REACTIONS (7)
  - Leukopenia [Unknown]
  - Abdominal pain [Unknown]
  - Rash [Unknown]
  - Diarrhoea [Unknown]
  - Dry skin [Unknown]
  - Fatigue [Unknown]
  - Aspartate aminotransferase increased [Unknown]
